FAERS Safety Report 8896827 (Version 1)
Quarter: 2012Q4

REPORT INFORMATION
  Report Type: Spontaneous
  Country: US (occurrence: None)
  Receive Date: 20121107
  Receipt Date: 20121107
  Transmission Date: 20130627
  Serious: Yes (Disabling)
  Sender: FDA-Public Use
  Company Number: None

PATIENT
  Age: 54 Year
  Sex: Male
  Weight: 74.84 kg

DRUGS (4)
  1. TERBINAFINE 250MG CAMBER [Suspect]
     Indication: FUNGAL INFECTION
     Dosage: 250mg   1 tab daily  po
     Route: 048
     Dates: start: 20121022, end: 20121030
  2. STEROID [Concomitant]
  3. MUSCLE RELAXERS [Concomitant]
  4. PAIN RELIEVER [Concomitant]

REACTIONS (1)
  - Myalgia [None]
